FAERS Safety Report 17252047 (Version 1)
Quarter: 2019Q4

REPORT INFORMATION
  Report Type: Spontaneous
  Country: US (occurrence: US)
  Receive Date: 20191216
  Receipt Date: 20191216
  Transmission Date: 20200122
  Serious: Yes (Hospitalization)
  Sender: FDA-Public Use
  Company Number: None

PATIENT
  Age: 27 Year
  Sex: Male

DRUGS (9)
  1. PROMETHAZINE [Concomitant]
     Active Substance: PROMETHAZINE HYDROCHLORIDE
  2. ALPRAZOLAM. [Concomitant]
     Active Substance: ALPRAZOLAM
  3. CELECOXIB. [Concomitant]
     Active Substance: CELECOXIB
  4. CIPROFLOXACIN. [Concomitant]
     Active Substance: CIPROFLOXACIN
  5. DICOYCLOMINE [Concomitant]
  6. MELOXICAM. [Concomitant]
     Active Substance: MELOXICAM
  7. BENZONATE [Concomitant]
     Active Substance: BENZONATATE
  8. METOCLOPRAMIDE. [Concomitant]
     Active Substance: METOCLOPRAMIDE
  9. PANTOPRAZOLE 40 MG [Suspect]
     Active Substance: PANTOPRAZOLE SODIUM
     Dosage: ?          OTHER FREQUENCY:EVERY MORNING ;?
     Route: 048

REACTIONS (2)
  - Pneumonia [None]
  - Gastrointestinal disorder [None]

NARRATIVE: CASE EVENT DATE: 20191203
